FAERS Safety Report 7183864-0 (Version None)
Quarter: 2010Q4

REPORT INFORMATION
  Report Type: 
  Country: None (occurrence: None)
  Receive Date: 20101222
  Receipt Date: 20101217
  Transmission Date: 20110411
  Serious: Yes (Death, Hospitalization)
  Sender: FDA-Public Use
  Company Number: ES-ROCHE-708258

PATIENT
  Sex: Male
  Weight: 63 kg

DRUGS (2)
  1. CAPECITABINE [Suspect]
     Dosage: FREQUENCY:DAY1-14. LAST DOSE PRIOR TO SAE: 01 JUNE 2010.PERMANANTLY DISCONTINUED.
     Route: 048
     Dates: start: 20100428, end: 20100608
  2. OXALIPLATIN [Suspect]
     Dosage: FORM:INFUSION. LAST DOSE PRIOR TO SAE:18 MAY 2010. PERMANANTLY DISCONTINUED.
     Route: 042
     Dates: start: 20100428, end: 20100608

REACTIONS (1)
  - INTESTINAL PERFORATION [None]
